FAERS Safety Report 8566435-0 (Version None)
Quarter: 2012Q3

REPORT INFORMATION
  Report Type: 
  Country: None (occurrence: None)
  Receive Date: 20120803
  Receipt Date: 20111019
  Transmission Date: 20120928
  Serious: No
  Sender: FDA-Public Use
  Company Number: US-ABBOTT-11P-163-0867148-00

PATIENT
  Sex: Female
  Weight: 68.1 kg

DRUGS (4)
  1. AVAPRO [Concomitant]
     Indication: PRODUCT USED FOR UNKNOWN INDICATION
  2. NIASPAN [Suspect]
     Dosage: 500 AND 1000 MG
  3. NIASPAN [Suspect]
     Indication: HIGH DENSITY LIPOPROTEIN DECREASED
     Dates: start: 20101001
  4. NIASPAN [Suspect]

REACTIONS (2)
  - CHEST PAIN [None]
  - PARAESTHESIA [None]
